FAERS Safety Report 9224166 (Version 2)
Quarter: 2013Q2

REPORT INFORMATION
  Report Type: Spontaneous
  Country: US (occurrence: US)
  Receive Date: 20130411
  Receipt Date: 20130516
  Transmission Date: 20140414
  Serious: No
  Sender: FDA-Public Use
  Company Number: US-PFIZER INC-2013114712

PATIENT
  Age: 50 Year
  Sex: Female
  Weight: 79.37 kg

DRUGS (3)
  1. LYRICA [Suspect]
     Indication: NEUROPATHY PERIPHERAL
     Dosage: 150 MG (TWO CAPSULES OF 75 MG EACH), 2X/DAY
     Route: 048
     Dates: start: 201210, end: 201303
  2. LYRICA [Suspect]
     Dosage: 225 MG (THREE CAPSULES OF 75 MG EACH), 1X/DAY
     Route: 048
     Dates: start: 201303
  3. OXYBUTYNIN [Concomitant]
     Indication: INCONTINENCE
     Dosage: 5 MG, 3X/DAY

REACTIONS (1)
  - Constipation [Unknown]
